FAERS Safety Report 5632302-5 (Version None)
Quarter: 2008Q1

REPORT INFORMATION
  Report Type: 
  Country: None (occurrence: None)
  Receive Date: 20080212
  Receipt Date: 20080204
  Transmission Date: 20080703
  Serious: Yes (Death, Hospitalization)
  Sender: FDA-Public Use
  Company Number: 100#08#2008-00561

PATIENT
  Age: 59 Year
  Sex: Female

DRUGS (1)
  1. METHOTREXATE [Suspect]
     Indication: RHEUMATOID ARTHRITIS
     Dosage: 7.5 MG/WEEK
     Route: 048

REACTIONS (18)
  - ALEXIA [None]
  - APALLIC SYNDROME [None]
  - BIOPSY BRAIN ABNORMAL [None]
  - BLOOD CREATININE DECREASED [None]
  - BLOOD GLUCOSE INCREASED [None]
  - BLOOD LACTIC ACID INCREASED [None]
  - BRAIN OEDEMA [None]
  - CEREBRAL HYPOPERFUSION [None]
  - DEMYELINATING POLYNEUROPATHY [None]
  - GLIOSIS [None]
  - INTRACRANIAL PRESSURE INCREASED [None]
  - LEUKOENCEPHALOPATHY [None]
  - LUNG INFECTION PSEUDOMONAL [None]
  - NERVE CONDUCTION STUDIES ABNORMAL [None]
  - NERVOUS SYSTEM DISORDER [None]
  - PNEUMONIA ASPIRATION [None]
  - SEPSIS [None]
  - VISUAL ACUITY REDUCED [None]
